FAERS Safety Report 5400369-5 (Version None)
Quarter: 2007Q3

REPORT INFORMATION
  Report Type: 
  Country: None (occurrence: None)
  Receive Date: 20070730
  Receipt Date: 20070720
  Transmission Date: 20080115
  Serious: Yes (Death)
  Sender: FDA-Public Use
  Company Number: B0473586A

PATIENT
  Age: 75 Year
  Sex: Male

DRUGS (1)
  1. VALTREX [Suspect]
     Indication: HERPES ZOSTER
     Dosage: 1000MG PER DAY
     Route: 048
     Dates: start: 20070528, end: 20070530

REACTIONS (5)
  - AGITATION [None]
  - CEREBRAL INFARCTION [None]
  - DYSARTHRIA [None]
  - OVERDOSE [None]
  - RESTLESSNESS [None]
